FAERS Safety Report 5186362-9 (Version None)
Quarter: 2006Q4

REPORT INFORMATION
  Report Type: 
  Country: None (occurrence: None)
  Receive Date: 20061220
  Receipt Date: 20061215
  Transmission Date: 20070319
  Serious: Yes (Other)
  Sender: FDA-Public Use
  Company Number: JP-ELI_LILLY_AND_COMPANY-JP200612002879

PATIENT
  Sex: Male

DRUGS (1)
  1. GEMZAR [Suspect]
     Indication: PANCREATIC CARCINOMA
     Route: 042

REACTIONS (4)
  - ANAEMIA [None]
  - CARDIAC FAILURE [None]
  - HAEMOLYTIC URAEMIC SYNDROME [None]
  - RENAL FAILURE [None]
